FAERS Safety Report 9132877 (Version 3)
Quarter: 2013Q2

REPORT INFORMATION
  Report Type: Spontaneous
  Country: US (occurrence: US)
  Receive Date: 20130301
  Receipt Date: 20130416
  Transmission Date: 20140414
  Serious: No
  Sender: FDA-Public Use
  Company Number: US-PFIZER INC-2013073389

PATIENT
  Age: 85 Year
  Sex: Female

DRUGS (5)
  1. LYRICA [Suspect]
     Indication: NEUROPATHY PERIPHERAL
     Dosage: 100 MG, 2X/DAY
     Route: 048
     Dates: start: 2008
  2. ASA [Concomitant]
     Indication: CORONARY ARTERY DISEASE
     Dosage: 325 MG, 1X/DAY
  3. PLAVIX [Concomitant]
     Indication: CORONARY ARTERY DISEASE
     Dosage: 75 MG, 1X/DAY
     Dates: start: 2006
  4. LOPRESSOR [Concomitant]
     Indication: CORONARY ARTERY DISEASE
     Dosage: 25 MG, 2X/DAY
     Dates: start: 2006
  5. TAMOXIFEN [Concomitant]
     Indication: BREAST CANCER
     Dosage: 20 MG, 1X/DAY
     Dates: start: 2012

REACTIONS (1)
  - Arthralgia [Unknown]
